FAERS Safety Report 6630173-1 (Version None)
Quarter: 2010Q1

REPORT INFORMATION
  Report Type: 
  Country: None (occurrence: None)
  Receive Date: 20100311
  Receipt Date: 20100225
  Transmission Date: 20100710
  Serious: Yes (Hospitalization)
  Sender: FDA-Public Use
  Company Number: BR-BRISTOL-MYERS SQUIBB COMPANY-14996490

PATIENT
  Sex: Female

DRUGS (1)
  1. APROZIDE [Suspect]
     Dosage: FORM - TABLET

REACTIONS (1)
  - INFARCTION [None]
